FAERS Safety Report 6683563-5 (Version None)
Quarter: 2010Q2

REPORT INFORMATION
  Report Type: 
  Country: None (occurrence: None)
  Receive Date: 20100413
  Receipt Date: 20100329
  Transmission Date: 20101027
  Serious: Yes (Hospitalization)
  Sender: FDA-Public Use
  Company Number: AUR-APL-2010-00696

PATIENT
  Age: 36 Year
  Sex: Male

DRUGS (3)
  1. FLUOXETINE [Suspect]
  2. ABILIFY [Suspect]
  3. ATENOLOL [Concomitant]

REACTIONS (2)
  - OXYGEN SATURATION DECREASED [None]
  - SEDATION [None]
